FAERS Safety Report 10416541 (Version 1)
Quarter: 2014Q3

REPORT INFORMATION
  Report Type: Spontaneous
  Country: JP (occurrence: JP)
  Receive Date: 20140828
  Receipt Date: 20140828
  Transmission Date: 20150326
  Serious: Yes (Other)
  Sender: FDA-Public Use
  Company Number: JP-GLAXOSMITHKLINE-B1027188A

PATIENT

DRUGS (2)
  1. SERETIDE [Suspect]
     Active Substance: FLUTICASONE FUROATE\SALMETEROL XINAFOATE
     Indication: ASTHMA
     Dosage: 250MCG PER DAY
     Route: 055
  2. ONON [Concomitant]
     Active Substance: PRANLUKAST
     Route: 048

REACTIONS (2)
  - Eosinophilia [Unknown]
  - Cerebral artery embolism [Unknown]
